FAERS Safety Report 20870448 (Version 1)
Quarter: 2022Q2

REPORT INFORMATION
  Report Type: Spontaneous
  Country: CA (occurrence: CA)
  Receive Date: 20220525
  Receipt Date: 20220525
  Transmission Date: 20220721
  Serious: Yes (Other)
  Sender: FDA-Public Use
  Company Number: CA-BRISTOL-MYERS SQUIBB COMPANY-2022-040045

PATIENT
  Age: 70 Year
  Sex: Female

DRUGS (5)
  1. POMALYST [Suspect]
     Active Substance: POMALIDOMIDE
     Indication: Plasma cell myeloma
  2. DEXAMETHASONE [Concomitant]
     Active Substance: DEXAMETHASONE
  3. UNSPECIFIED INGREDIENT [Concomitant]
     Active Substance: UNSPECIFIED INGREDIENT
  4. DARATUMUMAB [Concomitant]
     Active Substance: DARATUMUMAB
     Dosage: DOSAGE FORM: SOLUTION INTRAVENOUS
     Route: 042
  5. RIVAROXABAN [Concomitant]
     Active Substance: RIVAROXABAN

REACTIONS (5)
  - Dyspnoea [Unknown]
  - Lung opacity [Unknown]
  - Oxygen saturation decreased [Unknown]
  - Pneumonitis [Unknown]
  - Pulmonary fibrosis [Unknown]
